FAERS Safety Report 8114846-X (Version None)
Quarter: 2012Q1

REPORT INFORMATION
  Report Type: 
  Country: None (occurrence: None)
  Receive Date: 20120202
  Receipt Date: 20120202
  Transmission Date: 20120608
  Serious: Yes (Life-Threatening, Hospitalization)
  Sender: FDA-Public Use
  Company Number: None

PATIENT
  Sex: Female
  Weight: 78.0187 kg

DRUGS (1)
  1. AZITHROMYCIN [Suspect]
     Indication: LYMPHADENOPATHY
     Dosage: 2 PILLS DAY ONE  ONE A DAY PILLS
     Dates: start: 20111216

REACTIONS (9)
  - HYPOTENSION [None]
  - PRURITUS [None]
  - DYSPNOEA [None]
  - BURNING SENSATION [None]
  - DYSPEPSIA [None]
  - PAIN IN EXTREMITY [None]
  - HEART RATE IRREGULAR [None]
  - RASH [None]
  - HEART RATE INCREASED [None]
